FAERS Safety Report 18145358 (Version 3)
Quarter: 2020Q3

REPORT INFORMATION
  Report Type: Spontaneous
  Country: JP (occurrence: JP)
  Receive Date: 20200813
  Receipt Date: 20200925
  Transmission Date: 20201103
  Serious: Yes (Other)
  Sender: FDA-Public Use
  Company Number: JP-TEVA-2020-JP-1815538

PATIENT
  Age: 9 Decade
  Sex: Male

DRUGS (7)
  1. AZILECT [Suspect]
     Active Substance: RASAGILINE MESYLATE
     Dosage: 1 MILLIGRAM DAILY;
     Route: 048
     Dates: end: 20200527
  2. NOURIAST [Concomitant]
     Active Substance: ISTRADEFYLLINE
     Dates: start: 202003
  3. MENESIT [Concomitant]
     Active Substance: CARBIDOPA\LEVODOPA
  4. AZILECT [Suspect]
     Active Substance: RASAGILINE MESYLATE
     Indication: PARKINSON^S DISEASE
     Dosage: 1 MILLIGRAM DAILY;
     Route: 048
     Dates: start: 20191127
  5. BETANIS [Concomitant]
     Active Substance: MIRABEGRON
  6. ALOSENN [Concomitant]
  7. TOVIAZ [Concomitant]
     Active Substance: FESOTERODINE FUMARATE

REACTIONS (2)
  - Tremor [Recovered/Resolved]
  - Sudden onset of sleep [Recovered/Resolved]

NARRATIVE: CASE EVENT DATE: 202005
